FAERS Safety Report 21930811 (Version 1)
Quarter: 2023Q1

REPORT INFORMATION
  Report Type: Other
  Country: IN (occurrence: None)
  Receive Date: 20230131
  Receipt Date: 20230131
  Transmission Date: 20230418
  Serious: Yes (Hospitalization)
  Sender: FDA-Public Use
  Company Number: IN-ROCHE-3270748

PATIENT
  Age: 22 Year
  Sex: Female

DRUGS (17)
  1. TOCILIZUMAB [Suspect]
     Active Substance: TOCILIZUMAB
     Indication: Takayasu^s arteritis
     Route: 042
     Dates: start: 202105
  2. TOCILIZUMAB [Suspect]
     Active Substance: TOCILIZUMAB
     Indication: Pyoderma gangrenosum
     Dosage: 2ND DOSE
     Route: 042
     Dates: start: 202108, end: 202108
  3. PREDNISOLONE [Concomitant]
     Active Substance: PREDNISOLONE
     Indication: Takayasu^s arteritis
     Dates: start: 202007
  4. PREDNISOLONE [Concomitant]
     Active Substance: PREDNISOLONE
     Dates: start: 202105
  5. PREDNISOLONE [Concomitant]
     Active Substance: PREDNISOLONE
     Dates: start: 202107
  6. PREDNISOLONE [Concomitant]
     Active Substance: PREDNISOLONE
     Dates: start: 202107
  7. PREDNISOLONE [Concomitant]
     Active Substance: PREDNISOLONE
     Dates: start: 202108
  8. PREDNISOLONE [Concomitant]
     Active Substance: PREDNISOLONE
     Dates: start: 202109
  9. PREDNISOLONE [Concomitant]
     Active Substance: PREDNISOLONE
     Dates: start: 202009
  10. COLCHICINE [Concomitant]
     Active Substance: COLCHICINE
     Indication: Skin lesion
     Dates: start: 202003
  11. METHOTREXATE [Concomitant]
     Active Substance: METHOTREXATE
     Indication: Takayasu^s arteritis
     Dosage: INCREASED GRADUALLY TO 25 MG PER WEEK OVER A 2-MONTH PERIOD
     Route: 065
     Dates: start: 202007
  12. METHOTREXATE [Concomitant]
     Active Substance: METHOTREXATE
     Indication: Skin lesion
     Dosage: INCREASED GRADUALLY TO 25 MG PER WEEK OVER A 2-MONTH PERIOD
     Dates: start: 202009
  13. INFLIXIMAB [Concomitant]
     Active Substance: INFLIXIMAB
     Indication: Takayasu^s arteritis
  14. CEFEPIME [Concomitant]
     Active Substance: CEFEPIME HYDROCHLORIDE
     Indication: Skin lesion
  15. CLINDAMYCIN [Concomitant]
     Active Substance: CLINDAMYCIN
     Indication: Skin lesion
  16. ISONIAZID [Concomitant]
     Active Substance: ISONIAZID
  17. RIFAMPIN [Concomitant]
     Active Substance: RIFAMPIN

REACTIONS (2)
  - Pyoderma gangrenosum [Recovered/Resolved]
  - Drug ineffective [Unknown]

NARRATIVE: CASE EVENT DATE: 20210701
